FAERS Safety Report 4929738-4 (Version None)
Quarter: 2006Q1

REPORT INFORMATION
  Report Type: 
  Country: None (occurrence: None)
  Receive Date: 20060127
  Receipt Date: 20051118
  Transmission Date: 20060701
  Serious: No
  Sender: FDA-Public Use
  Company Number: 2005158414

PATIENT
  Age: 86 Year
  Sex: Male

DRUGS (6)
  1. LYRICA [Suspect]
     Indication: POST HERPETIC NEURALGIA
     Dates: start: 20051101, end: 20051101
  2. VICODIN [Suspect]
     Indication: POST HERPETIC NEURALGIA
  3. ALL OTHER THERAPEUTIC PRODUCTS [Concomitant]
  4. ALTACE [Concomitant]
  5. IBUPROFEN [Concomitant]
  6. ACETAMINOPHEN [Concomitant]

REACTIONS (7)
  - BALANCE DISORDER [None]
  - DRUG INTERACTION [None]
  - FEELING ABNORMAL [None]
  - HANGOVER [None]
  - POST HERPETIC NEURALGIA [None]
  - SOMNOLENCE [None]
  - WEIGHT DECREASED [None]
